FAERS Safety Report 17635524 (Version 1)
Quarter: 2020Q2

REPORT INFORMATION
  Report Type: Spontaneous
  Country: US (occurrence: US)
  Receive Date: 20200406
  Receipt Date: 20200406
  Transmission Date: 20200713
  Serious: Yes (Other)
  Sender: FDA-Public Use
  Company Number: US-FRESENIUS KABI-FK202003497

PATIENT
  Age: 85 Year
  Sex: Female

DRUGS (1)
  1. LIDOCAINE 1% (MANUFACTURER UNKNOWN) [Suspect]
     Active Substance: LIDOCAINE HYDROCHLORIDE
     Indication: PRODUCT USED FOR UNKNOWN INDICATION
     Route: 058

REACTIONS (2)
  - Local anaesthetic systemic toxicity [Unknown]
  - Stress cardiomyopathy [Unknown]
